FAERS Safety Report 19926893 (Version 1)
Quarter: 2021Q4

REPORT INFORMATION
  Report Type: Spontaneous
  Country: US (occurrence: US)
  Receive Date: 20211007
  Receipt Date: 20211007
  Transmission Date: 20220303
  Serious: No
  Sender: FDA-Public Use
  Company Number: US-INDIVIOR US-INDV-126767-2020

PATIENT

DRUGS (3)
  1. SUBOXONE [Suspect]
     Active Substance: BUPRENORPHINE HYDROCHLORIDE\NALOXONE HYDROCHLORIDE
     Indication: Burning sensation
     Dosage: THREE 8 MILLIGRAM FILMS, QD
     Route: 065
  2. SUBOXONE [Suspect]
     Active Substance: BUPRENORPHINE HYDROCHLORIDE\NALOXONE HYDROCHLORIDE
     Dosage: UNK (CUT DOWN TO TWO AND HALF FILMS PER DAY)
     Route: 065
  3. SUBOXONE [Suspect]
     Active Substance: BUPRENORPHINE HYDROCHLORIDE\NALOXONE HYDROCHLORIDE
     Dosage: UNK (TWO AND QUARTER FILMS)
     Route: 065

REACTIONS (5)
  - Off label use [Unknown]
  - Drug effect less than expected [Not Recovered/Not Resolved]
  - Wrong technique in product usage process [Unknown]
  - Intentional underdose [Unknown]
  - Pain [Unknown]
